FAERS Safety Report 21611993 (Version 2)
Quarter: 2022Q4

REPORT INFORMATION
  Report Type: Spontaneous
  Country: PL (occurrence: PL)
  Receive Date: 20221118
  Receipt Date: 20221128
  Transmission Date: 20230112
  Serious: Yes (Hospitalization, Other)
  Sender: FDA-Public Use
  Company Number: PL-GILEAD-2022-0605567

PATIENT
  Age: 63 Year
  Sex: Male

DRUGS (2)
  1. GENVOYA [Suspect]
     Active Substance: COBICISTAT\ELVITEGRAVIR\EMTRICITABINE\TENOFOVIR ALAFENAMIDE FUMARATE
     Indication: HIV infection
     Route: 065
  2. METOPROLOL TARTRATE [Concomitant]
     Active Substance: METOPROLOL TARTRATE
     Dosage: 47.5 MG 1-0-1

REACTIONS (4)
  - Myocardial infarction [Recovered/Resolved]
  - Myocardial ischaemia [Unknown]
  - Arteriosclerosis coronary artery [Unknown]
  - Hypertension [Unknown]

NARRATIVE: CASE EVENT DATE: 20221025
